FAERS Safety Report 17242003 (Version 1)
Quarter: 2020Q1

REPORT INFORMATION
  Report Type: Spontaneous
  Country: US (occurrence: US)
  Receive Date: 20200107
  Receipt Date: 20200107
  Transmission Date: 20200409
  Serious: No
  Sender: FDA-Public Use
  Company Number: US-TEVA-2020-US-1163746

PATIENT
  Age: 60 Year
  Sex: Female

DRUGS (2)
  1. CLONAZEPAM TEVA [Suspect]
     Active Substance: CLONAZEPAM
     Indication: FIBROMYALGIA
  2. CLONAZEPAM TEVA [Suspect]
     Active Substance: CLONAZEPAM
     Indication: AUTONOMIC NERVOUS SYSTEM IMBALANCE
     Dosage: STRENGTH: UNKNOWN
     Route: 065
     Dates: start: 20191228

REACTIONS (4)
  - Drug ineffective [Unknown]
  - Headache [Unknown]
  - Product substitution issue [Unknown]
  - Dizziness [Unknown]

NARRATIVE: CASE EVENT DATE: 20191230
